FAERS Safety Report 5556165-1 (Version None)
Quarter: 2007Q4

REPORT INFORMATION
  Report Type: 
  Country: None (occurrence: None)
  Receive Date: 20071211
  Receipt Date: 20071129
  Transmission Date: 20080405
  Serious: Yes (Hospitalization)
  Sender: FDA-Public Use
  Company Number: 2007BI025404

PATIENT
  Age: 52 Year
  Sex: Female

DRUGS (5)
  1. NATALIZUMAB [Suspect]
     Indication: MULTIPLE SCLEROSIS
     Dosage: 300 MG;QM;IV
     Route: 042
     Dates: start: 20071001
  2. LAMOTRIGINE [Concomitant]
  3. KEPPRA [Concomitant]
  4. TEGRETOL [Concomitant]
  5. LEXAPRO [Concomitant]

REACTIONS (1)
  - CONVULSION [None]
